FAERS Safety Report 14568053 (Version 2)
Quarter: 2018Q1

REPORT INFORMATION
  Report Type: Spontaneous
  Country: JP (occurrence: JP)
  Receive Date: 20180223
  Receipt Date: 20180302
  Transmission Date: 20180509
  Serious: Yes (Hospitalization, Other)
  Sender: FDA-Public Use
  Company Number: JP-PFIZER INC-2018071260

PATIENT
  Age: 9 Decade
  Sex: Female
  Weight: 43 kg

DRUGS (13)
  1. EPINASTINE. [Concomitant]
     Active Substance: EPINASTINE HYDROCHLORIDE
  2. FLUTIDE [Concomitant]
     Active Substance: FLUTICASONE PROPIONATE
  3. AMLODIPINE [Concomitant]
     Active Substance: AMLODIPINE BESYLATE
  4. RALOXIFENE. [Concomitant]
     Active Substance: RALOXIFENE
  5. GLAKAY [Concomitant]
     Active Substance: MENATETRENONE
  6. LIMAPROST ALFADEX [Concomitant]
     Active Substance: LIMAPROST
  7. VALSARTAN. [Concomitant]
     Active Substance: VALSARTAN
  8. TOVIAZ [Suspect]
     Active Substance: FESOTERODINE FUMARATE
     Indication: NEUROGENIC BLADDER
     Dosage: 4 MG, 1X/DAY
     Route: 048
     Dates: start: 201706
  9. LYRICA [Concomitant]
     Active Substance: PREGABALIN
  10. BIO-THREE [Concomitant]
     Active Substance: HERBALS
  11. FLUTICASONE. [Concomitant]
     Active Substance: FLUTICASONE
  12. NEUROTROPIN /06251301/ [Concomitant]
     Active Substance: ORYCTOLAGUS CUNICULUS SKIN
  13. NOIDOUBLE [Concomitant]
     Active Substance: SPIRONOLACTONE

REACTIONS (5)
  - Urinary retention [Recovered/Resolved]
  - Vomiting [Unknown]
  - Decreased appetite [Unknown]
  - Pneumonia [Unknown]
  - Vertigo [Unknown]

NARRATIVE: CASE EVENT DATE: 201707
